FAERS Safety Report 25157918 (Version 2)
Quarter: 2025Q2

REPORT INFORMATION
  Report Type: Report from Study
  Country: KR (occurrence: KR)
  Receive Date: 20250404
  Receipt Date: 20250414
  Transmission Date: 20250716
  Serious: Yes (Hospitalization)
  Sender: ABBVIE
  Company Number: KR-ABBVIE-6202700

PATIENT
  Age: 30 Year
  Sex: Male
  Weight: 68 kg

DRUGS (7)
  1. RINVOQ [Suspect]
     Active Substance: UPADACITINIB
     Indication: Crohn^s disease
     Route: 048
     Dates: start: 20250124
  2. RINVOQ [Suspect]
     Active Substance: UPADACITINIB
     Indication: Crohn^s disease
     Route: 048
     Dates: start: 20241105, end: 20250123
  3. PENTASA [Concomitant]
     Active Substance: MESALAMINE
     Indication: Crohn^s disease
     Dosage: SR GRANULE 1G?FORM STRENGTH 1 G
     Route: 048
     Dates: start: 20190104
  4. Methysol [Concomitant]
     Indication: Crohn^s disease
     Dosage: FROM STRENGTH 125 MG?FREQUENCY TEXT: 1 DAY
     Route: 042
     Dates: start: 20250216, end: 20250220
  5. FERROUS SULFATE [Concomitant]
     Active Substance: FERROUS SULFATE
     Indication: Crohn^s disease
     Route: 048
     Dates: start: 20250220
  6. Solondo [Concomitant]
     Indication: Crohn^s disease
     Dosage: FORM STRENGTH 5 MILLIGRAM?START DATE 2025?FREQUENCY TEXT: 7 DAY
     Route: 048
  7. Solondo [Concomitant]
     Indication: Crohn^s disease
     Dosage: END DATE 2025
     Route: 048
     Dates: start: 20250221

REACTIONS (1)
  - Crohn^s disease [Recovered/Resolved with Sequelae]

NARRATIVE: CASE EVENT DATE: 20250216
